FAERS Safety Report 15013797 (Version 3)
Quarter: 2020Q2

REPORT INFORMATION
  Report Type: Spontaneous
  Country: US (occurrence: US)
  Receive Date: 20180614
  Receipt Date: 20200408
  Transmission Date: 20200713
  Serious: No
  Sender: FDA-Public Use
  Company Number: US-VIFOR (INTERNATIONAL) INC.-VIT-2018-05880

PATIENT
  Age: 60 Year
  Sex: Female
  Weight: 56.07 kg

DRUGS (9)
  1. FISH OIL [Concomitant]
     Active Substance: FISH OIL
  2. LEVOTHYROXINE SODIUM. [Concomitant]
     Active Substance: LEVOTHYROXINE SODIUM
  3. VELTASSA [Suspect]
     Active Substance: PATIROMER
  4. ATORVASTATIN CALCIUM. [Concomitant]
     Active Substance: ATORVASTATIN CALCIUM
  5. VELTASSA [Suspect]
     Active Substance: PATIROMER
     Route: 048
  6. VELTASSA [Suspect]
     Active Substance: PATIROMER
     Indication: HYPERKALAEMIA
     Route: 048
  7. VELTASSA [Suspect]
     Active Substance: PATIROMER
     Dates: start: 20190502
  8. COENZYME Q10 [Concomitant]
     Active Substance: UBIDECARENONE
  9. VALSARTAN. [Concomitant]
     Active Substance: VALSARTAN

REACTIONS (3)
  - Abdominal discomfort [Unknown]
  - Blood potassium increased [Unknown]
  - Product dose omission [Unknown]
